FAERS Safety Report 4558116-5 (Version None)
Quarter: 2005Q1

REPORT INFORMATION
  Report Type: 
  Country: None (occurrence: None)
  Receive Date: 20050103
  Receipt Date: 20040923
  Transmission Date: 20050727
  Serious: Yes (Other)
  Sender: FDA-Public Use
  Company Number: 2004UW19880

PATIENT
  Age: 64 Year
  Sex: Male
  Weight: 81.1939 kg

DRUGS (9)
  1. CRESTOR [Suspect]
     Indication: BLOOD CHOLESTEROL INCREASED
     Dosage: 10 MG BID PO
     Route: 048
  2. CLONAZEPAM [Concomitant]
  3. TEGRETOL [Concomitant]
  4. DEPAKOTE [Concomitant]
  5. FLOMAX [Concomitant]
  6. SELEGILINE HCL [Concomitant]
  7. SINEMET CR [Concomitant]
  8. COMTAN [Concomitant]
  9. DIOVAN HCT [Concomitant]

REACTIONS (1)
  - AGITATION [None]
